FAERS Safety Report 6719925-7 (Version None)
Quarter: 2010Q2

REPORT INFORMATION
  Report Type: 
  Country: None (occurrence: None)
  Receive Date: 20100506
  Receipt Date: 20100429
  Transmission Date: 20101027
  Serious: Yes (Life-Threatening)
  Sender: FDA-Public Use
  Company Number: 2010EU001694

PATIENT
  Age: 36 Year
  Sex: Female

DRUGS (2)
  1. PROTOPIC [Suspect]
     Dates: start: 20060101, end: 20090101
  2. DERMOVAL (CLOBETASOL PROPIONATE) [Concomitant]

REACTIONS (4)
  - HYPERGAMMAGLOBULINAEMIA [None]
  - MYCOSIS FUNGOIDES [None]
  - PAIN [None]
  - PERIPHERAL T-CELL LYMPHOMA UNSPECIFIED [None]
